FAERS Safety Report 4694572-X (Version None)
Quarter: 2005Q2

REPORT INFORMATION
  Report Type: 
  Country: None (occurrence: None)
  Receive Date: 20050620
  Receipt Date: 20050613
  Transmission Date: 20051028
  Serious: Yes (Other)
  Sender: FDA-Public Use
  Company Number: PHBS2005US08395

PATIENT
  Age: 51 Year
  Sex: Female

DRUGS (2)
  1. LESCOL [Suspect]
  2. CRESTOR [Suspect]
     Route: 048

REACTIONS (3)
  - HYPERSOMNIA [None]
  - MUSCULAR WEAKNESS [None]
  - MYALGIA [None]
